FAERS Safety Report 9847748 (Version 1)
Quarter: 2014Q1

REPORT INFORMATION
  Report Type: Spontaneous
  Country: US (occurrence: US)
  Receive Date: 20140128
  Receipt Date: 20140128
  Transmission Date: 20141002
  Serious: Yes (Hospitalization)
  Sender: FDA-Public Use
  Company Number: 2014SP000383

PATIENT
  Age: 64 Year
  Sex: 0

DRUGS (6)
  1. VANCOMYCIN [Suspect]
     Indication: PERITONITIS
     Route: 033
     Dates: start: 201310
  2. CEFTAZIDIME [Suspect]
     Indication: PERITONITIS
     Route: 033
     Dates: start: 2013
  3. GENTAMICIN [Suspect]
     Indication: PERITONITIS
     Route: 033
     Dates: start: 20131023, end: 20131023
  4. DIANEAL PD-4 [Concomitant]
     Indication: PRODUCT USED FOR UNKNOWN INDICATION
  5. DIANEAL PD-4 [Concomitant]
     Indication: PRODUCT USED FOR UNKNOWN INDICATION
  6. DEXTRIN [Concomitant]
     Indication: PRODUCT USED FOR UNKNOWN INDICATION

REACTIONS (1)
  - Sepsis [Recovered/Resolved]
